FAERS Safety Report 20989959 (Version 2)
Quarter: 2022Q2

REPORT INFORMATION
  Report Type: Spontaneous
  Country: US (occurrence: US)
  Receive Date: 20220621
  Receipt Date: 20220623
  Transmission Date: 20220721
  Serious: No
  Sender: FDA-Public Use
  Company Number: US-PURDUE PHARMA-USA-2022-0291276

PATIENT
  Sex: Male

DRUGS (5)
  1. OXYCODONE HYDROCHLORIDE [Suspect]
     Active Substance: OXYCODONE HYDROCHLORIDE
     Indication: Pain
     Dosage: 20 MG, QID
     Route: 065
  2. GABAPENTIN [Suspect]
     Active Substance: GABAPENTIN
     Indication: Pain
     Dosage: 600 MG, QID
     Route: 048
  3. CYMBALTA [Suspect]
     Active Substance: DULOXETINE HYDROCHLORIDE
     Indication: Pain
     Dosage: 60 MG, BID
     Route: 048
  4. ZOLOFT [Suspect]
     Active Substance: SERTRALINE HYDROCHLORIDE
     Indication: Pain
     Dosage: 100 MG, ODD DAYS
     Route: 048
  5. DICLOFENAC [Suspect]
     Active Substance: DICLOFENAC
     Indication: Pain
     Dosage: 75 MG, BID
     Route: 048

REACTIONS (1)
  - Drug ineffective [Unknown]
